FAERS Safety Report 23700562 (Version 2)
Quarter: 2024Q2

REPORT INFORMATION
  Report Type: Report from Study
  Country: GB (occurrence: GB)
  Receive Date: 20240403
  Receipt Date: 20240408
  Transmission Date: 20240716
  Serious: Yes (Disabling)
  Sender: FDA-Public Use
  Company Number: GB-002147023-NVSC2023GB138929

PATIENT
  Age: 81 Year
  Sex: Male

DRUGS (2)
  1. PLUVICTO [Suspect]
     Active Substance: LUTETIUM LU-177 VIPIVOTIDE TETRAXETAN
     Indication: Hormone-refractory prostate cancer
     Dosage: 7400 MBQ, EVERY 6 WEEKS
     Route: 042
     Dates: start: 20230126, end: 20230824
  2. PLUVICTO [Suspect]
     Active Substance: LUTETIUM LU-177 VIPIVOTIDE TETRAXETAN
     Dosage: 7388 MBQ (11 CYCLE_1)
     Route: 042

REACTIONS (8)
  - Dry mouth [Not Recovered/Not Resolved]
  - Salivary hyposecretion [Unknown]
  - Weight decreased [Unknown]
  - Feeding disorder [Unknown]
  - Dysphagia [Unknown]
  - Quality of life decreased [Unknown]
  - Insomnia [Unknown]
  - Speech disorder [Unknown]

NARRATIVE: CASE EVENT DATE: 20230126
